FAERS Safety Report 7631449-1 (Version None)
Quarter: 2011Q3

REPORT INFORMATION
  Report Type: 
  Country: None (occurrence: None)
  Receive Date: 20110725
  Receipt Date: 20110712
  Transmission Date: 20111222
  Serious: Yes (Death, Other)
  Sender: FDA-Public Use
  Company Number: CA-ELI_LILLY_AND_COMPANY-CA201107003026

PATIENT
  Sex: Female
  Weight: 91 kg

DRUGS (15)
  1. TEMAZEPAM [Concomitant]
  2. RISPERDAL [Concomitant]
  3. IMOVANE [Concomitant]
  4. ZYPREXA [Suspect]
     Dosage: 15 MG, EACH EVENING
  5. LORAZEPAM [Concomitant]
  6. ALPRAZOLAM [Concomitant]
  7. STELAZINE [Concomitant]
  8. TYLENOL W/ CODEINE [Concomitant]
  9. MELOXICAM [Concomitant]
  10. DIVALPROEX SODIUM [Concomitant]
  11. PERPHENAZINE [Concomitant]
  12. ZYPREXA [Suspect]
     Dosage: 10 MG, EACH EVENING
  13. VENLAFAXINE [Concomitant]
  14. NITRAZEPAM [Concomitant]
  15. SEROQUEL [Concomitant]

REACTIONS (6)
  - WEIGHT INCREASED [None]
  - ASPARTATE AMINOTRANSFERASE INCREASED [None]
  - MYOCARDIAL INFARCTION [None]
  - BLOOD TRIGLYCERIDES INCREASED [None]
  - DIABETES MELLITUS [None]
  - BLOOD PRESSURE INCREASED [None]
